FAERS Safety Report 17798894 (Version 1)
Quarter: 2020Q2

REPORT INFORMATION
  Report Type: Spontaneous
  Country: IT (occurrence: IT)
  Receive Date: 20200518
  Receipt Date: 20200518
  Transmission Date: 20200714
  Serious: Yes (Death, Other)
  Sender: FDA-Public Use
  Company Number: IT-SHIRE-IT202016505

PATIENT

DRUGS (1)
  1. HUMAN NORMAL IMMUNOGLOBULIN [Suspect]
     Active Substance: HUMAN IMMUNOGLOBULIN G
     Indication: GUILLAIN-BARRE SYNDROME
     Route: 042

REACTIONS (8)
  - Blood pressure fluctuation [Unknown]
  - Posterior reversible encephalopathy syndrome [Not Recovered/Not Resolved]
  - Agitation [Not Recovered/Not Resolved]
  - Status epilepticus [Not Recovered/Not Resolved]
  - Arrhythmia [Fatal]
  - Unresponsive to stimuli [Not Recovered/Not Resolved]
  - Hypertension [Unknown]
  - Hyponatraemia [Unknown]
